FAERS Safety Report 6728149-9 (Version None)
Quarter: 2010Q2

REPORT INFORMATION
  Report Type: 
  Country: None (occurrence: None)
  Receive Date: 20100517
  Receipt Date: 20100506
  Transmission Date: 20101027
  Serious: Yes (Hospitalization)
  Sender: FDA-Public Use
  Company Number: A0843514A

PATIENT
  Sex: Female

DRUGS (3)
  1. ADVAIR DISKUS 100/50 [Suspect]
     Indication: ASTHMA
     Dosage: 1PUFF TWICE PER DAY
     Route: 055
     Dates: start: 20060101
  2. NASONEX [Concomitant]
  3. XOPENEX [Concomitant]

REACTIONS (7)
  - ASTHMA [None]
  - BRONCHITIS [None]
  - DYSPNOEA [None]
  - ILL-DEFINED DISORDER [None]
  - MALAISE [None]
  - NASOPHARYNGITIS [None]
  - PSYCHOSOMATIC DISEASE [None]
